FAERS Safety Report 13577038 (Version 3)
Quarter: 2018Q2

REPORT INFORMATION
  Report Type: Spontaneous
  Country: US (occurrence: US)
  Receive Date: 20170524
  Receipt Date: 20180412
  Transmission Date: 20180711
  Serious: No
  Sender: FDA-Public Use
  Company Number: US-TEVA-765837ACC

PATIENT
  Sex: Female

DRUGS (22)
  1. TRAMADOL. [Concomitant]
     Active Substance: TRAMADOL
  2. AMITRIPTYLIN [Concomitant]
     Active Substance: AMITRIPTYLINE
  3. ROBAXIN [Concomitant]
     Active Substance: METHOCARBAMOL
  4. TRIAMCINOLIN [Concomitant]
  5. DULOXETINE. [Concomitant]
     Active Substance: DULOXETINE
  6. VITAMIN D3 [Concomitant]
     Active Substance: CHOLECALCIFEROL
  7. LOSARTAN. [Concomitant]
     Active Substance: LOSARTAN
  8. ALPRAZOLAM. [Concomitant]
     Active Substance: ALPRAZOLAM
  9. NEURONTIN [Concomitant]
     Active Substance: GABAPENTIN
  10. PERMETHRIN. [Concomitant]
     Active Substance: PERMETHRIN
  11. DICLOFENAC [Concomitant]
     Active Substance: DICLOFENAC
  12. COPAXONE [Suspect]
     Active Substance: GLATIRAMER ACETATE
     Indication: MULTIPLE SCLEROSIS
     Dosage: 20 MILLIGRAM DAILY; PFS
     Route: 058
     Dates: start: 20091113
  13. LORATADINE. [Concomitant]
     Active Substance: LORATADINE
  14. SYNTHROID [Concomitant]
     Active Substance: LEVOTHYROXINE SODIUM
  15. TRIAMTERENE AND HYDROCHLOROTHIAZIDE [Concomitant]
     Active Substance: HYDROCHLOROTHIAZIDE\TRIAMTERENE
  16. BACLOFEN. [Concomitant]
     Active Substance: BACLOFEN
  17. FOLIC ACID. [Concomitant]
     Active Substance: FOLIC ACID
  18. NAPROXEN. [Concomitant]
     Active Substance: NAPROXEN
  19. SIMVASTATIN. [Concomitant]
     Active Substance: SIMVASTATIN
  20. GABAPENTIN. [Concomitant]
     Active Substance: GABAPENTIN
  21. OMEPRAZOLE. [Concomitant]
     Active Substance: OMEPRAZOLE
  22. LEVOTHYROXIN [Concomitant]
     Active Substance: LEVOTHYROXINE

REACTIONS (6)
  - Goitre [Unknown]
  - Dizziness [Not Recovered/Not Resolved]
  - Mass [Unknown]
  - Osteoarthritis [Not Recovered/Not Resolved]
  - Anxiety [Not Recovered/Not Resolved]
  - Vertigo [Not Recovered/Not Resolved]

NARRATIVE: CASE EVENT DATE: 2015
